FAERS Safety Report 11430828 (Version 1)
Quarter: 2015Q3

REPORT INFORMATION
  Report Type: Spontaneous
  Country: US (occurrence: US)
  Receive Date: 20150828
  Receipt Date: 20150828
  Transmission Date: 20151125
  Serious: No
  Sender: FDA-Public Use
  Company Number: PHEH2014US020570

PATIENT
  Age: 52 Year
  Sex: Female
  Weight: 58.96 kg

DRUGS (1)
  1. VIVELLE DOT [Suspect]
     Active Substance: ESTRADIOL
     Indication: HOT FLUSH
     Dosage: 0.05 MG, EVERY 72 HOURS
     Route: 003
     Dates: start: 20140815

REACTIONS (3)
  - Application site swelling [Not Recovered/Not Resolved]
  - Application site reaction [Not Recovered/Not Resolved]
  - Application site pruritus [Not Recovered/Not Resolved]

NARRATIVE: CASE EVENT DATE: 20140815
